FAERS Safety Report 6551919-7 (Version None)
Quarter: 2010Q1

REPORT INFORMATION
  Report Type: 
  Country: None (occurrence: None)
  Receive Date: 20100126
  Receipt Date: 20100114
  Transmission Date: 20100710
  Serious: Yes (Other)
  Sender: FDA-Public Use
  Company Number: IT-ELI_LILLY_AND_COMPANY-IT200912004990

PATIENT

DRUGS (2)
  1. ZYPREXA [Suspect]
     Dosage: 5 MG, DAILY (1/D)
     Route: 064
     Dates: end: 20091126
  2. EUTIMIL [Concomitant]
     Dosage: 20 MG, DAILY (1/D)
     Route: 064

REACTIONS (8)
  - BRADYCARDIA [None]
  - CONVULSION NEONATAL [None]
  - CYANOSIS [None]
  - DRUG EXPOSURE DURING PREGNANCY [None]
  - DYSPNOEA [None]
  - HYPOTONIA NEONATAL [None]
  - NEONATAL HYPONATRAEMIA [None]
  - OPISTHOTONUS [None]
